FAERS Safety Report 12200814 (Version 2)
Quarter: 2016Q2

REPORT INFORMATION
  Report Type: Report from Study
  Country: US (occurrence: US)
  Receive Date: 20160322
  Receipt Date: 20160425
  Transmission Date: 20160815
  Serious: Yes (Other)
  Sender: FDA-Public Use
  Company Number: US-BRISTOL-MYERS SQUIBB COMPANY-BMS-2016-018669

PATIENT
  Sex: Male

DRUGS (1)
  1. IPILIMUMAB [Suspect]
     Active Substance: IPILIMUMAB
     Indication: PROSTATE CANCER
     Dosage: UNK
     Route: 042
     Dates: start: 2015

REACTIONS (5)
  - Performance status decreased [Unknown]
  - Pain [Not Recovered/Not Resolved]
  - Colitis [Recovered/Resolved]
  - Thyroid function test abnormal [Unknown]
  - Hot flush [Unknown]
